FAERS Safety Report 24251699 (Version 1)
Quarter: 2024Q3

REPORT INFORMATION
  Report Type: Spontaneous
  Country: US (occurrence: US)
  Receive Date: 20240827
  Receipt Date: 20240827
  Transmission Date: 20241017
  Serious: Yes (Hospitalization)
  Sender: NOVO NORDISK
  Company Number: US-NOVOPROD-1272278

PATIENT
  Sex: Female

DRUGS (2)
  1. OZEMPIC [Suspect]
     Active Substance: SEMAGLUTIDE
     Indication: Product used for unknown indication
     Dosage: 0.5 MG
     Route: 058
  2. AMOXAL [AMOXICILLIN] [Concomitant]
     Indication: Product used for unknown indication
     Dosage: 8.75-1.25 MG TWICE A DAY

REACTIONS (1)
  - Hospitalisation [Unknown]
